FAERS Safety Report 25810243 (Version 2)
Quarter: 2025Q3

REPORT INFORMATION
  Report Type: Spontaneous
  Country: EU (occurrence: None)
  Receive Date: 20250917
  Receipt Date: 20250918
  Transmission Date: 20251020
  Serious: Yes (Hospitalization, Other)
  Sender: ORION
  Company Number: EU-Orion Corporation ORION PHARMA-TREX2025-0146

PATIENT
  Age: 88 Year
  Sex: Male

DRUGS (10)
  1. METHOTREXATE [Suspect]
     Active Substance: METHOTREXATE
     Indication: Product used for unknown indication
  2. RAMIPRIL [Concomitant]
     Active Substance: RAMIPRIL
  3. SITAGLIPTIN [Concomitant]
     Active Substance: SITAGLIPTIN
  4. INSULIN GLARGINE [Concomitant]
     Active Substance: INSULIN GLARGINE
  5. ATORVASTATIN [Concomitant]
     Active Substance: ATORVASTATIN
  6. SILODOSIN [Concomitant]
     Active Substance: SILODOSIN
  7. MIRTAZAPINE [Concomitant]
     Active Substance: MIRTAZAPINE
  8. OMEPRAZOLE [Concomitant]
     Active Substance: OMEPRAZOLE
  9. FOLIC ACID [Concomitant]
     Active Substance: FOLIC ACID
  10. VITAMIN B12 [Concomitant]
     Active Substance: CYANOCOBALAMIN

REACTIONS (2)
  - Pneumocystis jirovecii pneumonia [Recovered/Resolved with Sequelae]
  - Fall [Unknown]
